FAERS Safety Report 4820299-7 (Version None)
Quarter: 2005Q4

REPORT INFORMATION
  Report Type: 
  Country: None (occurrence: None)
  Receive Date: 20051014
  Receipt Date: 20050908
  Transmission Date: 20060501
  Serious: No
  Sender: FDA-Public Use
  Company Number: 2005SP002708

PATIENT
  Age: 57 Year
  Sex: Female

DRUGS (2)
  1. LUNESTA [Suspect]
     Indication: INSOMNIA
     Dosage: 2 MG;HS;ORAL
     Route: 048
     Dates: start: 20050904, end: 20050907
  2. ATORVASTATIN CALCIUM [Concomitant]

REACTIONS (4)
  - DYSGEUSIA [None]
  - NERVOUSNESS [None]
  - PARADOXICAL DRUG REACTION [None]
  - RESTLESS LEGS SYNDROME [None]
